FAERS Safety Report 24812294 (Version 2)
Quarter: 2025Q1

REPORT INFORMATION
  Report Type: Spontaneous
  Country: US (occurrence: US)
  Receive Date: 20250106
  Receipt Date: 20250325
  Transmission Date: 20250409
  Serious: Yes (Other)
  Sender: SANOFI AVENTIS
  Company Number: US-SANOFI-02358768

PATIENT
  Age: 83 Year
  Sex: Female

DRUGS (3)
  1. SOLIQUA 100/33 [Suspect]
     Active Substance: INSULIN GLARGINE\LIXISENATIDE
     Indication: Diabetes mellitus
     Dosage: 20 IU, QD
     Route: 065
  2. JARDIANCE [Concomitant]
     Active Substance: EMPAGLIFLOZIN
  3. NOVOLIN N [Concomitant]
     Active Substance: INSULIN HUMAN

REACTIONS (6)
  - Multiple fractures [Unknown]
  - Large intestinal obstruction [Unknown]
  - Dizziness [Unknown]
  - Fall [Unknown]
  - Blood insulin abnormal [Unknown]
  - Intentional product misuse [Unknown]
